FAERS Safety Report 9270993 (Version 2)
Quarter: 2013Q2

REPORT INFORMATION
  Report Type: Spontaneous
  Country: FR (occurrence: FR)
  Receive Date: 20130506
  Receipt Date: 20130605
  Transmission Date: 20140414
  Serious: No
  Sender: FDA-Public Use
  Company Number: FR-JNJFOC-20130416981

PATIENT
  Sex: Female

DRUGS (2)
  1. DUROGESIC [Suspect]
     Indication: PAIN
     Dosage: 1 DUROGESIC PATCH 25 MCG/H CUT IN HALF
     Route: 062
     Dates: start: 20130410
  2. DUROGESIC [Suspect]
     Indication: PAIN
     Route: 062

REACTIONS (4)
  - Drug prescribing error [Unknown]
  - Off label use [Unknown]
  - Nausea [Unknown]
  - Somnolence [Unknown]
